FAERS Safety Report 7904568-X (Version None)
Quarter: 2011Q4

REPORT INFORMATION
  Report Type: 
  Country: None (occurrence: None)
  Receive Date: 20111109
  Receipt Date: 20111031
  Transmission Date: 20120403
  Serious: Yes (Hospitalization)
  Sender: FDA-Public Use
  Company Number: US-BAYER-2011-059738

PATIENT
  Age: 18 Year
  Sex: Female
  Weight: 66.213 kg

DRUGS (2)
  1. DROSPIRENONE AND ETHINYL ESTRADIOL [Suspect]
     Indication: CONTRACEPTION
     Dosage: UNK
     Dates: start: 20081023, end: 20081121
  2. ORTHO EVRA [Concomitant]
     Indication: CONTRACEPTION
     Dosage: UNK
     Route: 062
     Dates: start: 20090108

REACTIONS (4)
  - CHOLECYSTITIS CHRONIC [None]
  - INJURY [None]
  - PAIN [None]
  - CHOLELITHIASIS [None]
